FAERS Safety Report 9717634 (Version 2)
Quarter: 2014Q4

REPORT INFORMATION
  Report Type: Report from Study
  Country: FR (occurrence: FR)
  Receive Date: 20131127
  Receipt Date: 20141114
  Transmission Date: 20150529
  Serious: Yes (Other)
  Sender: FDA-Public Use
  Company Number: FR-PFIZER INC-2013332520

PATIENT
  Age: 45 Year
  Sex: Male
  Weight: 86 kg

DRUGS (14)
  1. ZELITREX [Concomitant]
     Active Substance: VALACYCLOVIR HYDROCHLORIDE
     Indication: PROPHYLAXIS
     Dosage: UNK
     Dates: start: 201305
  2. ATGAM [Suspect]
     Active Substance: EQUINE THYMOCYTE IMMUNE GLOBULIN
     Indication: BONE MARROW FAILURE
     Dosage: 40 MG/KG, DAILY
     Route: 042
     Dates: start: 20130517, end: 20130520
  3. NEORAL [Suspect]
     Active Substance: CYCLOSPORINE
     Indication: APLASTIC ANAEMIA
     Dosage: 250 MG, 2X/DAY
     Route: 048
     Dates: start: 20130517, end: 20130722
  4. NEORAL [Suspect]
     Active Substance: CYCLOSPORINE
     Dosage: 125 MG, 1X/DAY (IN THE MORNING )
  5. SOLU-MEDROL [Concomitant]
     Active Substance: METHYLPREDNISOLONE SODIUM SUCCINATE
     Indication: PREMEDICATION
     Dosage: 20 MG, DAILY
  6. NEORAL [Suspect]
     Active Substance: CYCLOSPORINE
     Dosage: 225 MG, 2X/DAY
     Dates: start: 20130723
  7. NEORAL [Suspect]
     Active Substance: CYCLOSPORINE
     Dosage: 100 MG, 1X/DAY (IN THE EVENING)
  8. TAVANIC [Concomitant]
     Active Substance: LEVOFLOXACIN
     Indication: PROPHYLAXIS
  9. BACTRIM [Concomitant]
     Active Substance: SULFAMETHOXAZOLE\TRIMETHOPRIM
     Indication: PROPHYLAXIS
     Dosage: UNK
     Dates: start: 201305
  10. POLARAMINE [Concomitant]
     Active Substance: DEXCHLORPHENIRAMINE MALEATE
     Indication: PREMEDICATION
  11. GRANOCYTE [Concomitant]
     Active Substance: LENOGRASTIM
     Dosage: 3 INJECTIONS WEEKLY
     Dates: start: 20130614, end: 20130709
  12. FOLINIC ACID [Concomitant]
     Active Substance: LEUCOVORIN
     Dosage: 3X/DAY
  13. VANCOMYCIN [Concomitant]
     Active Substance: VANCOMYCIN
     Indication: STAPHYLOCOCCAL INFECTION
     Dosage: UNK
     Dates: start: 201305
  14. TAZOCILLINE [Concomitant]
     Active Substance: PIPERACILLIN SODIUM\TAZOBACTAM SODIUM
     Indication: STAPHYLOCOCCAL INFECTION
     Dosage: UNK
     Dates: start: 201305

REACTIONS (10)
  - Purpura [Recovered/Resolved]
  - Chills [Recovered/Resolved]
  - Hyperuricaemia [Not Recovered/Not Resolved]
  - Myopia [Not Recovered/Not Resolved]
  - Renal impairment [Recovering/Resolving]
  - Infusion site reaction [Unknown]
  - Oedema peripheral [Unknown]
  - Rash pruritic [Recovered/Resolved]
  - Diabetes mellitus [Recovering/Resolving]
  - Muscle spasms [Unknown]

NARRATIVE: CASE EVENT DATE: 201305
